FAERS Safety Report 8122830-5 (Version None)
Quarter: 2012Q1

REPORT INFORMATION
  Report Type: 
  Country: None (occurrence: None)
  Receive Date: 20120208
  Receipt Date: 20120203
  Transmission Date: 20120608
  Serious: Yes (Other)
  Sender: FDA-Public Use
  Company Number: JP-PFIZER INC-2012031225

PATIENT
  Age: 59 Year
  Sex: Male

DRUGS (7)
  1. MYONAL [Concomitant]
     Dosage: UNK
  2. METHYCOBAL [Concomitant]
     Dosage: UNK
  3. LYRICA [Suspect]
     Indication: SCIATICA
     Dosage: UNK
     Dates: start: 20120111
  4. ALLOPURINOL [Concomitant]
     Dosage: UNK
  5. LASIX [Concomitant]
     Dosage: UNK
  6. OMEPRAZOLE [Concomitant]
     Dosage: UNK
  7. LYRICA [Suspect]
     Dosage: UNK
     Route: 048
     Dates: start: 20120128

REACTIONS (1)
  - DRUG ERUPTION [None]
